FAERS Safety Report 7098076-9 (Version None)
Quarter: 2010Q4

REPORT INFORMATION
  Report Type: 
  Country: None (occurrence: None)
  Receive Date: 20101112
  Receipt Date: 20100111
  Transmission Date: 20110411
  Serious: No
  Sender: FDA-Public Use
  Company Number: US-KINGPHARMUSA00001-K201000026

PATIENT
  Sex: Male

DRUGS (3)
  1. ALTACE [Suspect]
     Dosage: UNK
     Dates: start: 20060701
  2. VIAGRA [Suspect]
     Dosage: UNK
  3. LIPITOR [Suspect]
     Dosage: UNK
     Dates: start: 20060701

REACTIONS (11)
  - EXOPHTHALMOS [None]
  - EYE PAIN [None]
  - EYELID PTOSIS [None]
  - FACIAL PAIN [None]
  - HYPOAESTHESIA [None]
  - HYPOAESTHESIA EYE [None]
  - HYPOAESTHESIA FACIAL [None]
  - LACRIMATION INCREASED [None]
  - NECK PAIN [None]
  - OCULAR HYPERAEMIA [None]
  - TENDERNESS [None]
